FAERS Safety Report 4897053-3 (Version None)
Quarter: 2006Q1

REPORT INFORMATION
  Report Type: 
  Country: None (occurrence: None)
  Receive Date: 20060127
  Receipt Date: 20060120
  Transmission Date: 20060701
  Serious: Yes (Hospitalization)
  Sender: FDA-Public Use
  Company Number: J081-002-002139

PATIENT
  Age: 82 Year
  Sex: Female

DRUGS (6)
  1. ARICEPT [Suspect]
     Indication: DEMENTIA ALZHEIMER'S TYPE
     Dosage: 3 MG, 1 IN 1 D, ORAL
     Route: 048
     Dates: start: 20050701, end: 20050728
  2. DILTIAZEM HYDROCHLORIDE [Concomitant]
  3. ASPIRIN [Concomitant]
  4. NOVADIL (NIVLVADIPINE) [Concomitant]
  5. HALCION [Concomitant]
  6. PROCTOSEDYL (PROCTOSEDYL OINTMENT ^ROCHE^) [Concomitant]

REACTIONS (6)
  - BRADYCARDIA [None]
  - CARDIOMYOPATHY [None]
  - LOSS OF CONSCIOUSNESS [None]
  - SICK SINUS SYNDROME [None]
  - SUPRAVENTRICULAR EXTRASYSTOLES [None]
  - TRANSIENT ISCHAEMIC ATTACK [None]
